FAERS Safety Report 18222939 (Version 1)
Quarter: 2020Q3

REPORT INFORMATION
  Report Type: Spontaneous
  Country: US (occurrence: US)
  Receive Date: 20200902
  Receipt Date: 20200902
  Transmission Date: 20201103
  Serious: No
  Sender: FDA-Public Use
  Company Number: US-ENCUBE ETHICALS PRIVATE LIMITED-2020RIS00334

PATIENT
  Sex: Female
  Weight: 72.56 kg

DRUGS (6)
  1. FLUOCINONIDE. [Suspect]
     Active Substance: FLUOCINONIDE
     Indication: ECZEMA
     Dosage: ^SMALL AMOUNT/ TINY AMOUNT^ AS NEEDED NO MORE THAN ONCE DAILY
     Route: 061
  2. FLUOCINONIDE. [Suspect]
     Active Substance: FLUOCINONIDE
     Dosage: UNK
     Route: 061
  3. TIMOLOL MALEATE (SANDOZ) [Concomitant]
     Active Substance: TIMOLOL MALEATE
     Dosage: UNK, 1X/DAY
  4. AZOPT (ALCON) [Concomitant]
     Dosage: UNK, 3X/DAY
  5. TIMOLOL MALEATE (SANDOZ) [Concomitant]
     Active Substance: TIMOLOL MALEATE
     Dosage: UNK, 2X/DAY
  6. VYZULTA (BAUSCH AND LOMB) [Concomitant]
     Dosage: UNK, 1X/DAY

REACTIONS (5)
  - Arthropathy [Unknown]
  - Intentional product misuse [Not Recovered/Not Resolved]
  - Peripheral venous disease [Not Recovered/Not Resolved]
  - Venous occlusion [Not Recovered/Not Resolved]
  - Intraocular pressure increased [Recovering/Resolving]
